FAERS Safety Report 12850071 (Version 1)
Quarter: 2016Q4

REPORT INFORMATION
  Report Type: Spontaneous
  Country: US (occurrence: US)
  Receive Date: 20161014
  Receipt Date: 20161014
  Transmission Date: 20170207
  Serious: No
  Sender: FDA-Public Use
  Company Number: US-ROCHE-1768496

PATIENT
  Sex: Male

DRUGS (15)
  1. FUROSEMIDE. [Concomitant]
     Active Substance: FUROSEMIDE
  2. LEVOTHYROXINE. [Concomitant]
     Active Substance: LEVOTHYROXINE
  3. MELATONIN [Concomitant]
     Active Substance: MELATONIN
  4. MUCINEX [Concomitant]
     Active Substance: GUAIFENESIN
  5. ADCIRCA [Concomitant]
     Active Substance: TADALAFIL
  6. SIMVASTATIN. [Concomitant]
     Active Substance: SIMVASTATIN
  7. FLUTICASONE [Concomitant]
     Active Substance: FLUTICASONE\FLUTICASONE PROPIONATE
  8. ALENDRONATE SODIUM. [Concomitant]
     Active Substance: ALENDRONATE SODIUM
  9. METOPROLOL. [Concomitant]
     Active Substance: METOPROLOL
  10. ESBRIET [Suspect]
     Active Substance: PIRFENIDONE
     Indication: PRODUCT USED FOR UNKNOWN INDICATION
     Route: 048
     Dates: start: 20160507
  11. FINASTERIDE. [Concomitant]
     Active Substance: FINASTERIDE
  12. OMEGA 3 [Concomitant]
     Active Substance: OMEGA-3 FATTY ACIDS
  13. ASPIRIN. [Concomitant]
     Active Substance: ASPIRIN
  14. TAMSULOSIN [Concomitant]
     Active Substance: TAMSULOSIN
  15. CARAFATE [Concomitant]
     Active Substance: SUCRALFATE

REACTIONS (2)
  - Photosensitivity reaction [Unknown]
  - Haemoptysis [Unknown]
